FAERS Safety Report 10651924 (Version 2)
Quarter: 2015Q1

REPORT INFORMATION
  Report Type: Spontaneous
  Country: PT (occurrence: None)
  Receive Date: 20141211
  Receipt Date: 20150121
  Transmission Date: 20150720
  Serious: Yes (Other)
  Sender: FDA-Public Use
  Company Number: 2657019

PATIENT
  Age: 47 Year
  Sex: Female
  Weight: 64 kg

DRUGS (4)
  1. SODIUM CHLORIDE. [Concomitant]
     Active Substance: SODIUM CHLORIDE
  2. DEXAMETHASONE. [Concomitant]
     Active Substance: DEXAMETHASONE
  3. DOCETAXEL. [Suspect]
     Active Substance: DOCETAXEL
     Indication: BREAST NEOPLASM
     Dosage: 157 MG, CYCLICAL, INTRAVENOUS
     Route: 042
     Dates: start: 20141014, end: 20141104
  4. ONDANSETRON [Concomitant]
     Active Substance: ONDANSETRON
     Indication: BREAST NEOPLASM

REACTIONS (4)
  - Haematochezia [None]
  - Renal pain [None]
  - Gait disturbance [None]
  - Haematuria [None]

NARRATIVE: CASE EVENT DATE: 20141004
